FAERS Safety Report 25771830 (Version 1)
Quarter: 2025Q3

REPORT INFORMATION
  Report Type: Spontaneous
  Country: JP (occurrence: JP)
  Receive Date: 20250908
  Receipt Date: 20250908
  Transmission Date: 20251021
  Serious: Yes (Life-Threatening, Hospitalization)
  Sender: MERCK SHARP & DOHME LLC
  Company Number: JP-009507513-2302700

PATIENT
  Age: 55 Year
  Sex: Female

DRUGS (4)
  1. KEYTRUDA [Suspect]
     Active Substance: PEMBROLIZUMAB
     Indication: Cervix cancer metastatic
     Dosage: 6 COURSES
     Route: 041
     Dates: start: 20230926, end: 20240202
  2. PACLITAXEL [Concomitant]
     Active Substance: PACLITAXEL
     Indication: Cervix cancer metastatic
     Route: 041
     Dates: start: 20230926, end: 20240202
  3. CARBOPLATIN [Concomitant]
     Active Substance: CARBOPLATIN
     Indication: Cervix cancer metastatic
     Route: 041
     Dates: start: 20230926, end: 20240202
  4. BEVACIZUMAB [Concomitant]
     Active Substance: BEVACIZUMAB
     Indication: Cervix cancer metastatic
     Route: 041
     Dates: start: 20230926, end: 20240202

REACTIONS (10)
  - Haemophagocytic lymphohistiocytosis [Recovering/Resolving]
  - Immune thrombocytopenia [Recovered/Resolved]
  - Pyrexia [Unknown]
  - Rash [Unknown]
  - Platelet count decreased [Recovering/Resolving]
  - Anaemia [Recovering/Resolving]
  - Neutrophil percentage abnormal [Recovering/Resolving]
  - Serum ferritin abnormal [Recovering/Resolving]
  - Cytokine abnormal [Unknown]
  - White blood cell count abnormal [Recovering/Resolving]

NARRATIVE: CASE EVENT DATE: 20230101
